FAERS Safety Report 8195005-1 (Version None)
Quarter: 2012Q1

REPORT INFORMATION
  Report Type: 
  Country: None (occurrence: None)
  Receive Date: 20120308
  Receipt Date: 20110826
  Transmission Date: 20120608
  Serious: No
  Sender: FDA-Public Use
  Company Number: US-GLAXOSMITHKLINE-A0942471A

PATIENT
  Age: 62 Year
  Sex: Male

DRUGS (2)
  1. NICORETTE [Suspect]
     Indication: TOBACCO ABUSE
  2. NICORETTE [Suspect]
     Indication: TOBACCO ABUSE

REACTIONS (6)
  - AMNESIA [None]
  - DENTAL CARIES [None]
  - NICOTINE DEPENDENCE [None]
  - ABNORMAL BEHAVIOUR [None]
  - DRUG ADMINISTRATION ERROR [None]
  - INTENTIONAL DRUG MISUSE [None]
